FAERS Safety Report 8483485-3 (Version None)
Quarter: 2012Q3

REPORT INFORMATION
  Report Type: 
  Country: None (occurrence: None)
  Receive Date: 20120702
  Receipt Date: 20120619
  Transmission Date: 20120928
  Serious: Yes (Hospitalization)
  Sender: FDA-Public Use
  Company Number: FI-FRI-1000036744

PATIENT
  Sex: Female

DRUGS (5)
  1. ATACAND [Suspect]
     Indication: HYPERTENSION
     Dosage: 8 MG
     Route: 048
     Dates: start: 20070101
  2. PROGYNOVA [Concomitant]
     Route: 048
  3. NEXIUM [Concomitant]
     Route: 048
  4. ACYCLOVIR [Concomitant]
     Route: 048
     Dates: start: 20120310
  5. ESCITALOPRAM [Suspect]
     Indication: DEPRESSION
     Dosage: 10 MG
     Route: 048
     Dates: start: 20120509, end: 20120515

REACTIONS (3)
  - VERTIGO [None]
  - DEAFNESS UNILATERAL [None]
  - NAUSEA [None]
